FAERS Safety Report 4751261-0 (Version None)
Quarter: 2005Q3

REPORT INFORMATION
  Report Type: 
  Country: None (occurrence: None)
  Receive Date: 20050824
  Receipt Date: 20050811
  Transmission Date: 20060218
  Serious: Yes (Hospitalization)
  Sender: FDA-Public Use
  Company Number: 2005AP04380

PATIENT
  Sex: Female

DRUGS (2)
  1. SEROQUEL [Suspect]
     Route: 048
     Dates: start: 20050728, end: 20050729
  2. MYSLEE [Suspect]
     Route: 048
     Dates: start: 20050728, end: 20050729

REACTIONS (2)
  - DRUG TOXICITY [None]
  - OVERDOSE [None]
